FAERS Safety Report 7889756-3 (Version None)
Quarter: 2011Q4

REPORT INFORMATION
  Report Type: 
  Country: None (occurrence: None)
  Receive Date: 20111103
  Receipt Date: 20111021
  Transmission Date: 20120403
  Serious: Yes (Other)
  Sender: FDA-Public Use
  Company Number: GB-MYLANLABS-2011S1021985

PATIENT
  Age: 55 Year
  Sex: Female

DRUGS (2)
  1. RADIATION THERAPY [Concomitant]
     Indication: METASTASES TO EYE
     Dosage: 20 GY IN FIVE FRACTIONS
  2. LETROZOLE [Suspect]
     Indication: BREAST CANCER

REACTIONS (3)
  - METASTASES TO BONE [None]
  - HEPATIC LESION [None]
  - NEOPLASM MALIGNANT [None]
